FAERS Safety Report 8181485 (Version 2)
Quarter: 2014Q2

REPORT INFORMATION
  Report Type: Report from Study
  Country: US (occurrence: US)
  Receive Date: 20111014
  Receipt Date: 20140423
  Transmission Date: 20141212
  Serious: Yes (Hospitalization)
  Sender: FDA-Public Use
  Company Number: PHHO2011US16730

PATIENT
  Age: 42 Year
  Sex: Male
  Weight: 106.5 kg

DRUGS (2)
  1. AFINITOR [Suspect]
     Indication: METASTATIC RENAL CELL CARCINOMA
     Dosage: UNK
     Route: 048
     Dates: end: 20110927
  2. DOXYCYCLINE [Suspect]
     Indication: RASH
     Dosage: 100 MG, BID
     Route: 048
     Dates: start: 20110919, end: 20110927

REACTIONS (2)
  - Haematochezia [Recovering/Resolving]
  - Abdominal pain [Recovering/Resolving]
